FAERS Safety Report 5797722-7 (Version None)
Quarter: 2008Q2

REPORT INFORMATION
  Report Type: 
  Country: None (occurrence: None)
  Receive Date: 20080630
  Receipt Date: 20080612
  Transmission Date: 20081010
  Serious: Yes (Disabling)
  Sender: FDA-Public Use
  Company Number: S08-USA-02077-01

PATIENT
  Age: 56 Year
  Sex: Female

DRUGS (1)
  1. LEXAPRO [Suspect]
     Indication: MENOPAUSAL SYMPTOMS
     Dosage: 10 MG QD PO
     Route: 048
     Dates: start: 20080527, end: 20080604

REACTIONS (33)
  - ABDOMINAL PAIN UPPER [None]
  - ABNORMAL DREAMS [None]
  - ANXIETY [None]
  - ASTHENIA [None]
  - BLISTER [None]
  - BREATH ODOUR [None]
  - DIARRHOEA [None]
  - DIZZINESS [None]
  - DRY MOUTH [None]
  - DYSGEUSIA [None]
  - DYSPEPSIA [None]
  - DYSPHONIA [None]
  - ENERGY INCREASED [None]
  - EPISTAXIS [None]
  - FATIGUE [None]
  - FEELING HOT [None]
  - GASTROENTERITIS SALMONELLA [None]
  - HALLUCINATION, VISUAL [None]
  - HEADACHE [None]
  - HYPERHIDROSIS [None]
  - HYPERPHAGIA [None]
  - HYPOREFLEXIA [None]
  - IMPAIRED WORK ABILITY [None]
  - INCREASED APPETITE [None]
  - INFLUENZA [None]
  - MIDDLE INSOMNIA [None]
  - NAUSEA [None]
  - NERVOUSNESS [None]
  - PHARYNGOLARYNGEAL PAIN [None]
  - SEROTONIN SYNDROME [None]
  - TREMOR [None]
  - VERTIGO [None]
  - YAWNING [None]
